FAERS Safety Report 7842392 (Version 6)
Quarter: 2017Q4

REPORT INFORMATION
  Report Type: Report from Study
  Country: JP (occurrence: JP)
  Receive Date: 20110304
  Receipt Date: 20171208
  Transmission Date: 20180321
  Serious: Yes (Hospitalization, Other)
  Sender: FDA-Public Use
  Company Number: PHHY2010JP71985

PATIENT
  Age: 31 Year
  Sex: Male

DRUGS (13)
  1. MYSLEE [Concomitant]
     Active Substance: ZOLPIDEM TARTRATE
     Indication: METASTATIC RENAL CELL CARCINOMA
     Dosage: 10 MG, UNK
     Route: 048
     Dates: start: 20101002
  2. MAGMITT KENEI [Concomitant]
     Indication: METASTATIC RENAL CELL CARCINOMA
     Dosage: 990 MG, UNK
     Route: 048
     Dates: start: 20101002
  3. AFINITOR [Suspect]
     Active Substance: EVEROLIMUS
     Dosage: 5 MG, QD
     Route: 048
     Dates: start: 20101130
  4. NEXAVAR [Concomitant]
     Active Substance: SORAFENIB
     Indication: METASTATIC RENAL CELL CARCINOMA
     Dosage: 600 MG, UNK
     Route: 048
     Dates: start: 20100628, end: 20100726
  5. AFINITOR [Suspect]
     Active Substance: EVEROLIMUS
     Indication: METASTATIC RENAL CELL CARCINOMA
     Dosage: 10 MG, QD
     Route: 048
     Dates: start: 20101005, end: 20101129
  6. AFINITOR [Suspect]
     Active Substance: EVEROLIMUS
     Dosage: 5 MG, QD
     Route: 048
     Dates: start: 20110105, end: 20110208
  7. LENDORMIN [Concomitant]
     Active Substance: BROTIZOLAM
     Indication: METASTATIC RENAL CELL CARCINOMA
     Dosage: 0.25 MG, UNK
     Route: 048
     Dates: start: 20101002
  8. MUCOSTA [Concomitant]
     Active Substance: REBAMIPIDE
     Indication: METASTATIC RENAL CELL CARCINOMA
     Dosage: 300 MG, UNK
     Route: 048
     Dates: start: 20101130
  9. CELECOXIB. [Concomitant]
     Active Substance: CELECOXIB
     Indication: METASTATIC RENAL CELL CARCINOMA
     Dosage: 200 MG, UNK
     Route: 048
     Dates: start: 20101002
  10. DUROTEP JANSSEN [Concomitant]
     Active Substance: FENTANYL
     Indication: METASTATIC RENAL CELL CARCINOMA
     Dosage: 6.3 MG, UNK
     Route: 065
     Dates: start: 20101002
  11. PURSENNID [Concomitant]
     Active Substance: SENNOSIDES A AND B
     Indication: METASTATIC RENAL CELL CARCINOMA
     Dosage: 24 MG, UNK
     Route: 048
     Dates: start: 20101002
  12. SUNITINIB MALATE. [Concomitant]
     Active Substance: SUNITINIB MALATE
     Indication: METASTATIC RENAL CELL CARCINOMA
     Dosage: 50 MG, UNK
     Route: 048
     Dates: start: 20100216, end: 20100228
  13. GASLON [Concomitant]
     Active Substance: IRSOGLADINE MALEATE
     Indication: METASTATIC RENAL CELL CARCINOMA
     Dosage: 4 MG, UNK
     Route: 048
     Dates: start: 20101002

REACTIONS (10)
  - Blood lactate dehydrogenase increased [Unknown]
  - Stomatitis [Recovered/Resolved]
  - C-reactive protein increased [Unknown]
  - Anaemia [Recovering/Resolving]
  - Anaemia [Recovered/Resolved]
  - Aspartate aminotransferase increased [Unknown]
  - Lymphocyte count decreased [Not Recovered/Not Resolved]
  - Gamma-glutamyltransferase increased [Unknown]
  - Malaise [Recovering/Resolving]
  - Blood alkaline phosphatase increased [Unknown]

NARRATIVE: CASE EVENT DATE: 20101018
